FAERS Safety Report 5476915-2 (Version None)
Quarter: 2007Q3

REPORT INFORMATION
  Report Type: 
  Country: None (occurrence: None)
  Receive Date: 20070912
  Receipt Date: 20070802
  Transmission Date: 20080115
  Serious: No
  Sender: FDA-Public Use
  Company Number: 002#2#2007-00131

PATIENT
  Age: 74 Year
  Sex: Female
  Weight: 75 kg

DRUGS (12)
  1. NEUPRO [Suspect]
     Indication: PARKINSON'S DISEASE
     Dosage: 2MG/24H,1 IN 1 D,TRANSDERMAL
     Route: 062
     Dates: start: 20070726
  2. CADUET [Concomitant]
  3. GLUCOPHAGE XR [Concomitant]
  4. SYNTHROID [Concomitant]
  5. CARBIDOPA AND LEVODOPA [Concomitant]
  6. MIRAPEX [Concomitant]
  7. ZOLOFT [Concomitant]
  8. LASIX [Concomitant]
  9. POTASSIUM CHLORIDE [Concomitant]
  10. GLUCOTROL [Concomitant]
  11. LANTUS [Concomitant]
  12. ARICEPT [Concomitant]

REACTIONS (1)
  - HAEMATOCHEZIA [None]
